FAERS Safety Report 6696885-9 (Version None)
Quarter: 2010Q2

REPORT INFORMATION
  Report Type: 
  Country: None (occurrence: None)
  Receive Date: 20100426
  Receipt Date: 20080828
  Transmission Date: 20101027
  Serious: Yes (Congenital Anomaly)
  Sender: FDA-Public Use
  Company Number: ZA-BRISTOL-MYERS SQUIBB COMPANY-14292569

PATIENT
  Sex: Female
  Weight: 4 kg

DRUGS (3)
  1. EFAVIRENZ TABS [Suspect]
     Indication: HIV INFECTION
     Dosage: TABS
     Route: 064
     Dates: start: 20061001
  2. STAVUDINE [Suspect]
     Route: 064
     Dates: start: 20061001
  3. LAMIVUDINE [Suspect]
     Route: 064
     Dates: start: 20061001

REACTIONS (3)
  - MATERNAL DRUGS AFFECTING FOETUS [None]
  - PREGNANCY [None]
  - TOOTH DEVELOPMENT DISORDER [None]
